FAERS Safety Report 23800458 (Version 1)
Quarter: 2024Q2

REPORT INFORMATION
  Report Type: Spontaneous
  Country: US (occurrence: US)
  Receive Date: 20240430
  Receipt Date: 20240430
  Transmission Date: 20240717
  Serious: Yes (Other)
  Sender: FDA-Public Use
  Company Number: US-INTRA-CELLULAR THERAPIES, INC.-2024ICT00617

PATIENT
  Age: 64 Year
  Sex: Female
  Weight: 135.62 kg

DRUGS (9)
  1. CAPLYTA [Suspect]
     Active Substance: LUMATEPERONE
     Indication: Bipolar disorder
     Dosage: 10.5 MG, 1X/DAY
     Route: 048
     Dates: start: 20240314, end: 20240317
  2. CAPLYTA [Suspect]
     Active Substance: LUMATEPERONE
     Indication: Obsessive-compulsive disorder
  3. CAPLYTA [Suspect]
     Active Substance: LUMATEPERONE
     Indication: Anxiety
  4. LITHIUM [Concomitant]
     Active Substance: LITHIUM
  5. NADOLOL [Concomitant]
     Active Substance: NADOLOL
  6. INGREZZA [Concomitant]
     Active Substance: VALBENAZINE
  7. MELATONIN [Concomitant]
     Active Substance: MELATONIN
  8. SYNTHROID [Concomitant]
     Active Substance: LEVOTHYROXINE SODIUM
  9. QULIPTA [Concomitant]
     Active Substance: ATOGEPANT

REACTIONS (2)
  - Long QT syndrome [Unknown]
  - Tardive dyskinesia [Not Recovered/Not Resolved]

NARRATIVE: CASE EVENT DATE: 20240301
